FAERS Safety Report 5276607-9 (Version None)
Quarter: 2007Q1

REPORT INFORMATION
  Report Type: 
  Country: None (occurrence: None)
  Receive Date: 20070327
  Receipt Date: 20070314
  Transmission Date: 20070707
  Serious: Yes (Hospitalization, Other)
  Sender: FDA-Public Use
  Company Number: PHBS2007CL02942

PATIENT
  Age: 79 Year
  Sex: Female

DRUGS (2)
  1. TAREG D [Suspect]
     Dosage: 1 TABLET/DAY
     Route: 048
  2. CARVEDILOL [Concomitant]

REACTIONS (1)
  - ARRHYTHMIA [None]
